FAERS Safety Report 18840613 (Version 1)
Quarter: 2021Q1

REPORT INFORMATION
  Report Type: Spontaneous
  Country: US (occurrence: US)
  Receive Date: 20210203
  Receipt Date: 20210203
  Transmission Date: 20210419
  Serious: Yes (Other)
  Sender: FDA-Public Use
  Company Number: US-HIKMA PHARMACEUTICALS USA INC.-US-H14001-21-00523

PATIENT
  Age: 55 Year
  Sex: Female

DRUGS (1)
  1. DOXERCALCIFEROL. [Suspect]
     Active Substance: DOXERCALCIFEROL
     Indication: PRODUCT USED FOR UNKNOWN INDICATION
     Route: 065

REACTIONS (4)
  - Acute kidney injury [Unknown]
  - Hypervitaminosis D [Unknown]
  - Hypercalcaemia [Unknown]
  - Medication error [Unknown]
